FAERS Safety Report 14147718 (Version 2)
Quarter: 2018Q1

REPORT INFORMATION
  Report Type: Report from Study
  Country: AU (occurrence: AU)
  Receive Date: 20171101
  Receipt Date: 20180205
  Transmission Date: 20180508
  Serious: Yes (Life-Threatening, Hospitalization)
  Sender: FDA-Public Use
  Company Number: AU-ROCHE-1960703

PATIENT
  Sex: Female
  Weight: 100 kg

DRUGS (6)
  1. METHOTREXATE. [Concomitant]
     Active Substance: METHOTREXATE
  2. PLAQUENIL [Concomitant]
     Active Substance: HYDROXYCHLOROQUINE SULFATE
  3. SULPHASALAZINE [Concomitant]
     Active Substance: SULFASALAZINE
  4. ENBREL [Concomitant]
     Active Substance: ETANERCEPT
     Route: 065
     Dates: start: 201307, end: 201606
  5. ATACAND [Concomitant]
     Active Substance: CANDESARTAN CILEXETIL
  6. ACTEMRA [Suspect]
     Active Substance: TOCILIZUMAB
     Indication: RHEUMATOID ARTHRITIS
     Dosage: ALSO REPORTED /JUN/2016 TO /MAY/2017
     Route: 042
     Dates: start: 20160907, end: 20170617

REACTIONS (2)
  - Hypersensitivity [Unknown]
  - Acute respiratory distress syndrome [Recovered/Resolved]
